FAERS Safety Report 23242651 (Version 1)
Quarter: 2023Q4

REPORT INFORMATION
  Report Type: Spontaneous
  Country: US (occurrence: US)
  Receive Date: 20231129
  Receipt Date: 20231129
  Transmission Date: 20240110
  Serious: No
  Sender: FDA-Public Use
  Company Number: US-Dermavant-000836

PATIENT
  Age: 31 Year
  Sex: Male

DRUGS (3)
  1. TAPINAROF [Suspect]
     Active Substance: TAPINAROF
     Indication: Psoriasis
     Dosage: THERAPY STARTED VTAMA SAMPLES, APPLIED ONE TIME DAILY IN THE MORNING TO HIS ELBOWS FOR PLAQUE PSO...
     Route: 061
  2. TAPINAROF [Suspect]
     Active Substance: TAPINAROF
     Indication: Psoriasis
     Dosage: APPLIED ONE TIME DAILY IN THE MORNING TO THE ELBOWS, KNEES, AND ONE AREA ON HIS SHIN FOR PLAQUE P...
     Route: 061
     Dates: start: 202307
  3. CLOBETASOL [Concomitant]
     Active Substance: CLOBETASOL
     Indication: Psoriasis

REACTIONS (8)
  - Guttate psoriasis [Not Recovered/Not Resolved]
  - Application site folliculitis [Recovering/Resolving]
  - Erythema [Not Recovered/Not Resolved]
  - Rash [Not Recovered/Not Resolved]
  - Application site pruritus [Recovering/Resolving]
  - Pain of skin [Recovering/Resolving]
  - Psoriasis [Not Recovered/Not Resolved]
  - Application site swelling [Not Recovered/Not Resolved]

NARRATIVE: CASE EVENT DATE: 20230101
